FAERS Safety Report 10302346 (Version 3)
Quarter: 2014Q3

REPORT INFORMATION
  Report Type: Report from Study
  Country: US (occurrence: US)
  Receive Date: 20140714
  Receipt Date: 20140826
  Transmission Date: 20150326
  Serious: Yes (Other)
  Sender: FDA-Public Use
  Company Number: US-ELI_LILLY_AND_COMPANY-US201407002117

PATIENT
  Age: 70 Year
  Sex: Male
  Weight: 79.37 kg

DRUGS (2)
  1. TERIPARATIDE [Suspect]
     Active Substance: TERIPARATIDE
     Indication: FRACTURE
     Dosage: UNK, QD
     Route: 065
     Dates: start: 20140701, end: 20140702
  2. TERIPARATIDE [Suspect]
     Active Substance: TERIPARATIDE
     Indication: OSTEOPOROSIS
     Dosage: UNK, QD
     Route: 065
     Dates: start: 20140630

REACTIONS (10)
  - Asthenia [Unknown]
  - Hypersensitivity [Unknown]
  - Dyspnoea [Recovered/Resolved]
  - Dizziness [Recovered/Resolved]
  - Malaise [Unknown]
  - Joint injury [Unknown]
  - Back pain [Unknown]
  - Head discomfort [Recovered/Resolved]
  - Head discomfort [Recovered/Resolved]
  - Malaise [Unknown]

NARRATIVE: CASE EVENT DATE: 20140630
